FAERS Safety Report 13404315 (Version 1)
Quarter: 2017Q2

REPORT INFORMATION
  Report Type: Spontaneous
  Country: AT (occurrence: AT)
  Receive Date: 20170405
  Receipt Date: 20170405
  Transmission Date: 20170830
  Serious: Yes (Hospitalization, Other)
  Sender: FDA-Public Use
  Company Number: AT-SUN PHARMACEUTICAL INDUSTRIES LTD-2017R1-137370

PATIENT
  Age: 69 Year
  Sex: Male

DRUGS (2)
  1. DOCETAXEL. [Suspect]
     Active Substance: DOCETAXEL
     Indication: TONSIL CANCER
     Dosage: UNK
     Route: 065
  2. CETUXIMAB. [Suspect]
     Active Substance: CETUXIMAB
     Indication: TONSIL CANCER
     Dosage: UNK
     Route: 065

REACTIONS (3)
  - Hypocalcaemia [Recovered/Resolved]
  - Refeeding syndrome [Recovered/Resolved]
  - Condition aggravated [Recovered/Resolved]
